FAERS Safety Report 4443943-5 (Version None)
Quarter: 2004Q3

REPORT INFORMATION
  Report Type: 
  Country: None (occurrence: None)
  Receive Date: 20040729
  Receipt Date: 20040524
  Transmission Date: 20050211
  Serious: Yes (Other)
  Sender: FDA-Public Use
  Company Number: US-JNJFOC-20040505895

PATIENT
  Age: 8 Year
  Sex: Female
  Weight: 23.587 kg

DRUGS (2)
  1. RISPERDAL [Suspect]
     Indication: BIPOLAR DISORDER
     Dosage: 2 MG, 1 IN 1 DAY, ORAL
     Route: 048
     Dates: start: 20020531
  2. DEPAKOTE ER (TABLETS) VALPROATE SEMISODIUM [Concomitant]

REACTIONS (1)
  - DYSTONIA [None]
